FAERS Safety Report 4790472-5 (Version None)
Quarter: 2005Q4

REPORT INFORMATION
  Report Type: 
  Country: None (occurrence: None)
  Receive Date: 20051005
  Receipt Date: 20050921
  Transmission Date: 20060501
  Serious: Yes (Hospitalization, Other)
  Sender: FDA-Public Use
  Company Number: USA0509108722

PATIENT
  Age: 75 Year
  Sex: Female
  Weight: 62 kg

DRUGS (2)
  1. HUMULIN 70/30 [Suspect]
     Dosage: 10 U/2 DAY
  2. GLYBURIDE [Concomitant]

REACTIONS (16)
  - ARTHROPATHY [None]
  - BLOOD GLUCOSE DECREASED [None]
  - BLOOD GLUCOSE INCREASED [None]
  - DIARRHOEA [None]
  - DYSPHAGIA [None]
  - DYSSTASIA [None]
  - FALL [None]
  - HEART RATE DECREASED [None]
  - JOINT INJURY [None]
  - MENINGIOMA [None]
  - RHEUMATOID ARTHRITIS [None]
  - SENSATION OF FOREIGN BODY [None]
  - STRESS [None]
  - TREMOR [None]
  - UPPER LIMB FRACTURE [None]
  - VOMITING [None]
